FAERS Safety Report 22317671 (Version 1)
Quarter: 2023Q2

REPORT INFORMATION
  Report Type: Spontaneous
  Country: US (occurrence: US)
  Receive Date: 20230515
  Receipt Date: 20230515
  Transmission Date: 20230721
  Serious: Yes (Hospitalization, Other)
  Sender: FDA-Public Use
  Company Number: US-SA-SAC20230512000487

PATIENT
  Age: 55 Year
  Sex: Female

DRUGS (21)
  1. AUBAGIO [Suspect]
     Active Substance: TERIFLUNOMIDE
     Indication: Multiple sclerosis
     Dosage: 14 MG, QD
     Route: 048
     Dates: start: 20160502
  2. PIROXICAM [Concomitant]
     Active Substance: PIROXICAM
  3. LYRICA [Concomitant]
     Active Substance: PREGABALIN
  4. VICTOZA [Concomitant]
     Active Substance: LIRAGLUTIDE
  5. BACLOFEN [Concomitant]
     Active Substance: BACLOFEN
  6. CARISOPRODOL [Concomitant]
     Active Substance: CARISOPRODOL
  7. HYDROMORPHONE HCL [Concomitant]
     Active Substance: HYDROMORPHONE HYDROCHLORIDE
  8. MORPHINE SULFATE [Concomitant]
     Active Substance: MORPHINE SULFATE
  9. SUMATRIPTAN SUCCINATE [Concomitant]
     Active Substance: SUMATRIPTAN SUCCINATE
  10. GLIPIZIDE [Concomitant]
     Active Substance: GLIPIZIDE
  11. PROMETHAZINE HYDROCHLORIDE [Concomitant]
     Active Substance: PROMETHAZINE HYDROCHLORIDE
  12. SAVELLA [Concomitant]
     Active Substance: MILNACIPRAN HYDROCHLORIDE
  13. GABAPENTIN [Concomitant]
     Active Substance: GABAPENTIN
  14. DIAZEPAM [Concomitant]
     Active Substance: DIAZEPAM
  15. DULOXETINE HYDROCHLORIDE [Concomitant]
     Active Substance: DULOXETINE HYDROCHLORIDE
  16. TRAZODONE HCL [Concomitant]
     Active Substance: TRAZODONE HYDROCHLORIDE
  17. OMEPRAZOLE [Concomitant]
     Active Substance: OMEPRAZOLE
  18. THEOPHYLLINE [Concomitant]
     Active Substance: THEOPHYLLINE
  19. POTASSIUM CHLORIDE [Concomitant]
     Active Substance: POTASSIUM CHLORIDE
  20. COPAXONE [Concomitant]
     Active Substance: GLATIRAMER ACETATE
  21. POVIDONE-IODINE [Concomitant]
     Active Substance: POVIDONE-IODINE

REACTIONS (1)
  - Coma [Unknown]

NARRATIVE: CASE EVENT DATE: 20230401
